FAERS Safety Report 7512596-1 (Version None)
Quarter: 2011Q2

REPORT INFORMATION
  Report Type: 
  Country: None (occurrence: None)
  Receive Date: 20110520
  Receipt Date: 20110509
  Transmission Date: 20111010
  Serious: Yes (Hospitalization)
  Sender: FDA-Public Use
  Company Number: WAES 1105USA01988

PATIENT
  Age: 36 Year
  Sex: Male

DRUGS (14)
  1. NEUPOGEN [Concomitant]
  2. CAP VORINOSTAT 100 MG [Suspect]
     Indication: DIFFUSE LARGE B-CELL LYMPHOMA
     Dosage: 200 MG/BID/PO
     Route: 048
     Dates: start: 20110502, end: 20110504
  3. CAP VORINOSTAT 100 MG [Suspect]
     Indication: DIFFUSE LARGE B-CELL LYMPHOMA
     Dosage: 200 MG/BID/PO
     Route: 048
     Dates: start: 20110426, end: 20110428
  4. MAALOX (ALUMINUM HYDROXIDE) [Concomitant]
  5. PROCHLORPERAZINE TAB [Concomitant]
  6. INFUSION (FORM) CARFILZOMIB UNK [Suspect]
     Indication: DIFFUSE LARGE B-CELL LYMPHOMA
     Dosage: 55 MG/DAILY/IV 74 MG/DAILY/IV
     Route: 042
     Dates: start: 20110502, end: 20110503
  7. INFUSION (FORM) CARFILZOMIB UNK [Suspect]
     Indication: DIFFUSE LARGE B-CELL LYMPHOMA
     Dosage: 55 MG/DAILY/IV 74 MG/DAILY/IV
     Route: 042
     Dates: start: 20110426, end: 20110427
  8. INFUSION (FORM) CARFILZOMIB UNK [Suspect]
  9. DEXAMETHASONE [Concomitant]
  10. GRANISETRON [Concomitant]
  11. LISINOPRIL [Concomitant]
  12. ONDANSETRON [Concomitant]
  13. ALLOPURINOL [Concomitant]
  14. CARVEDILOL [Concomitant]

REACTIONS (12)
  - BACK PAIN [None]
  - DIZZINESS [None]
  - FEBRILE NEUTROPENIA [None]
  - CONDITION AGGRAVATED [None]
  - INAPPROPRIATE ANTIDIURETIC HORMONE SECRETION [None]
  - DEHYDRATION [None]
  - DRY THROAT [None]
  - GOUTY ARTHRITIS [None]
  - COUGH [None]
  - HYPOTENSION [None]
  - THROMBOCYTOPENIA [None]
  - HYPONATRAEMIA [None]
